FAERS Safety Report 11441777 (Version 1)
Quarter: 2015Q3

REPORT INFORMATION
  Report Type: Spontaneous
  Country: US (occurrence: US)
  Receive Date: 20150901
  Receipt Date: 20150901
  Transmission Date: 20151125
  Serious: Yes (Other)
  Sender: FDA-Public Use
  Company Number: US-PFIZER INC-2015282025

PATIENT
  Age: 68 Year
  Sex: Female

DRUGS (1)
  1. INLYTA [Suspect]
     Active Substance: AXITINIB
     Indication: RENAL CANCER METASTATIC
     Dosage: 5 MG, 2X/DAY
     Route: 048

REACTIONS (10)
  - Weight decreased [Unknown]
  - Oral mucosal blistering [Not Recovered/Not Resolved]
  - Cognitive disorder [Unknown]
  - Oral pain [Unknown]
  - Activities of daily living impaired [Unknown]
  - Arthralgia [Unknown]
  - Memory impairment [Unknown]
  - Personality disorder [Unknown]
  - Dementia Alzheimer^s type [Unknown]
  - Decreased appetite [Unknown]
